FAERS Safety Report 7122628-0 (Version None)
Quarter: 2010Q4

REPORT INFORMATION
  Report Type: 
  Country: None (occurrence: None)
  Receive Date: 20101124
  Receipt Date: 20101025
  Transmission Date: 20110411
  Serious: Yes (Hospitalization)
  Sender: FDA-Public Use
  Company Number: AR-AMGEN-ARGCT2010002197

PATIENT

DRUGS (3)
  1. ETANERCEPT [Suspect]
     Indication: RHEUMATOID ARTHRITIS
     Dosage: 25 MG, 2 TIMES/WK
     Dates: start: 20070501, end: 20070101
  2. ETANERCEPT [Suspect]
     Dosage: 50 MG, QWK
     Dates: start: 20070101, end: 20100915
  3. ETANERCEPT [Suspect]
     Dosage: RESUMED AT UNSPECIFIED DOSE AND FREQUENCY
     Dates: start: 20101018

REACTIONS (1)
  - JOINT DISLOCATION [None]
